FAERS Safety Report 21674962 (Version 2)
Quarter: 2022Q4

REPORT INFORMATION
  Report Type: Spontaneous
  Country: US (occurrence: US)
  Receive Date: 20221202
  Receipt Date: 20221207
  Transmission Date: 20230113
  Serious: Yes (Hospitalization)
  Sender: FDA-Public Use
  Company Number: US-ABBVIE-4219043

PATIENT
  Sex: Male

DRUGS (1)
  1. IMBRUVICA [Suspect]
     Active Substance: IBRUTINIB
     Indication: Product used for unknown indication
     Dosage: STRENGTH:140 MG, 2 CAPSULES BY MOUTH ONCE DAILY AND LAST ADMIN DATE: 2022
     Route: 048
     Dates: start: 20220606

REACTIONS (5)
  - Hospitalisation [Unknown]
  - Peripheral swelling [Unknown]
  - Cast application [Unknown]
  - Foot fracture [Unknown]
  - Localised infection [Unknown]
